FAERS Safety Report 25244666 (Version 2)
Quarter: 2025Q2

REPORT INFORMATION
  Report Type: Spontaneous
  Country: US (occurrence: US)
  Receive Date: 20250428
  Receipt Date: 20250520
  Transmission Date: 20250717
  Serious: No
  Sender: ROCHE
  Company Number: US-ROCHE-10000260273

PATIENT
  Sex: Female

DRUGS (1)
  1. ACTEMRA ACTPEN [Suspect]
     Active Substance: TOCILIZUMAB
     Indication: Rheumatoid arthritis
     Dosage: FORM STRENGTH: 162MG/0.9ML
     Route: 058
     Dates: start: 202405

REACTIONS (3)
  - Neck mass [Recovered/Resolved]
  - Alopecia [Unknown]
  - Pharyngeal mass [Recovered/Resolved]
